FAERS Safety Report 8479129-7 (Version None)
Quarter: 2012Q2

REPORT INFORMATION
  Report Type: 
  Country: None (occurrence: None)
  Receive Date: 20120629
  Receipt Date: 20120621
  Transmission Date: 20120825
  Serious: Yes (Hospitalization)
  Sender: FDA-Public Use
  Company Number: FR-FRI-1000036658

PATIENT
  Sex: Female

DRUGS (4)
  1. MILNACIPRAN [Suspect]
     Dosage: 25 MG
     Route: 048
     Dates: start: 20120424, end: 20120522
  2. ZOPICLON [Concomitant]
  3. ASPEGIC 1000 [Concomitant]
  4. COLCHICINE [Concomitant]

REACTIONS (1)
  - MYALGIA [None]
